FAERS Safety Report 7213008-8 (Version None)
Quarter: 2011Q1

REPORT INFORMATION
  Report Type: 
  Country: None (occurrence: None)
  Receive Date: 20110106
  Receipt Date: 20101216
  Transmission Date: 20110831
  Serious: Yes (Hospitalization, Congenital Anomaly)
  Sender: FDA-Public Use
  Company Number: A0903360A

PATIENT
  Sex: Male

DRUGS (2)
  1. PAXIL CR [Suspect]
     Dosage: 25MG UNKNOWN
     Dates: start: 20020601, end: 20021227
  2. PAXIL [Suspect]
     Dosage: 20MG UNKNOWN
     Route: 065
     Dates: start: 20011224, end: 20020602

REACTIONS (3)
  - KIDNEY MALFORMATION [None]
  - DRUG EXPOSURE DURING PREGNANCY [None]
  - CONGENITAL AORTIC VALVE STENOSIS [None]
